FAERS Safety Report 8010207-2 (Version None)
Quarter: 2011Q4

REPORT INFORMATION
  Report Type: 
  Country: None (occurrence: None)
  Receive Date: 20111228
  Receipt Date: 20111216
  Transmission Date: 20120403
  Serious: Yes (Other)
  Sender: FDA-Public Use
  Company Number: DE-UCBSA-047900

PATIENT
  Age: 47 Year
  Sex: Male

DRUGS (4)
  1. KEPPRA [Suspect]
     Dates: start: 20111201, end: 20111201
  2. KEPPRA [Suspect]
     Dates: start: 20111204, end: 20111201
  3. KEPPRA [Suspect]
     Dates: start: 20111215
  4. FRISIUM [Concomitant]

REACTIONS (3)
  - LEUKOPENIA [None]
  - SIMPLE PARTIAL SEIZURES [None]
  - RESTLESSNESS [None]
